FAERS Safety Report 10379430 (Version 1)
Quarter: 2014Q3

REPORT INFORMATION
  Report Type: Spontaneous
  Country: CA (occurrence: CA)
  Receive Date: 20140812
  Receipt Date: 20140812
  Transmission Date: 20150326
  Serious: Yes (Other)
  Sender: FDA-Public Use
  Company Number: CA-DSJP-DSU-2014-118011

PATIENT

DRUGS (1)
  1. OLMETEC 20 MG [Suspect]
     Active Substance: OLMESARTAN MEDOXOMIL
     Indication: BLOOD PRESSURE
     Dosage: 20 MG, UNK

REACTIONS (6)
  - Sinus disorder [Recovered/Resolved]
  - Respiratory disorder [Recovered/Resolved]
  - Atrial fibrillation [Recovered/Resolved]
  - Renal disorder [Recovered/Resolved]
  - Urinary retention [Recovered/Resolved]
  - Blood potassium increased [Recovered/Resolved]
